FAERS Safety Report 8231371-6 (Version None)
Quarter: 2012Q1

REPORT INFORMATION
  Report Type: 
  Country: None (occurrence: None)
  Receive Date: 20120323
  Receipt Date: 20120321
  Transmission Date: 20120608
  Serious: Yes (Other)
  Sender: FDA-Public Use
  Company Number: US-MEDIMMUNE-MEDI-0014993

PATIENT
  Sex: Female

DRUGS (1)
  1. SYNAGIS [Suspect]
     Dates: start: 20120124, end: 20120124

REACTIONS (4)
  - PNEUMONIA [None]
  - WHEEZING [None]
  - EAR INFECTION [None]
  - HAND-FOOT-AND-MOUTH DISEASE [None]
